FAERS Safety Report 9380375 (Version 2)
Quarter: 2014Q1

REPORT INFORMATION
  Report Type: Spontaneous
  Country: IT (occurrence: IT)
  Receive Date: 20130702
  Receipt Date: 20140127
  Transmission Date: 20141002
  Serious: Yes (Hospitalization)
  Sender: FDA-Public Use
  Company Number: IT-TEVA-399810ISR

PATIENT
  Age: 22 Year
  Sex: Female

DRUGS (3)
  1. G-CSF (TEVAGRASTIM/RATIOGRASTIM) [Suspect]
     Indication: FEBRILE NEUTROPENIA
     Dosage: 480 MCG CYCLICAL
     Route: 058
     Dates: start: 20130301, end: 20130303
  2. OMEPRAZOLO [Concomitant]
     Dosage: 20 MILLIGRAM DAILY;
     Route: 048
     Dates: start: 20121205, end: 20130303
  3. ARANESP [Concomitant]
     Dosage: 300 MICROGRAM DAILY;
     Route: 048

REACTIONS (5)
  - Throat tightness [Recovered/Resolved]
  - Dyspnoea [Recovered/Resolved]
  - Abdominal pain [Recovered/Resolved]
  - Cold sweat [Recovered/Resolved]
  - Syncope [Recovered/Resolved]
